FAERS Safety Report 7871709-2 (Version None)
Quarter: 2011Q4

REPORT INFORMATION
  Report Type: 
  Country: None (occurrence: None)
  Receive Date: 20111029
  Receipt Date: 20110307
  Transmission Date: 20120403
  Serious: No
  Sender: FDA-Public Use
  Company Number: US-AMGEN-USASP2011012800

PATIENT
  Age: 79 Year
  Sex: Female

DRUGS (2)
  1. ENBREL [Suspect]
     Indication: PSORIASIS
     Dosage: 50 MG, QWK
     Dates: start: 19981201, end: 20110201
  2. ENBREL [Suspect]
     Indication: PSORIATIC ARTHROPATHY

REACTIONS (7)
  - ABDOMINAL PAIN UPPER [None]
  - RASH ERYTHEMATOUS [None]
  - DIARRHOEA [None]
  - PRURITUS [None]
  - CONSTIPATION [None]
  - C-REACTIVE PROTEIN ABNORMAL [None]
  - UPPER RESPIRATORY TRACT INFECTION [None]
